FAERS Safety Report 6206508-0 (Version None)
Quarter: 2009Q2

REPORT INFORMATION
  Report Type: 
  Country: None (occurrence: None)
  Receive Date: 20090528
  Receipt Date: 20090527
  Transmission Date: 20091009
  Serious: Yes (Hospitalization)
  Sender: FDA-Public Use
  Company Number: DE-BAYER-200921822GPV

PATIENT
  Age: 64 Year
  Sex: Male
  Weight: 76 kg

DRUGS (5)
  1. NEXAVAR [Suspect]
     Indication: RENAL CELL CARCINOMA
     Dosage: TOTAL DAILY DOSE: 800 MG
     Route: 048
     Dates: start: 20061207
  2. NEXAVAR [Suspect]
     Route: 048
     Dates: start: 20071210, end: 20080320
  3. DICLOFENAC SODIUM [Concomitant]
     Indication: DRUG USE FOR UNKNOWN INDICATION
     Route: 065
     Dates: start: 20060101
  4. PARACETAMOL [Concomitant]
     Indication: DRUG USE FOR UNKNOWN INDICATION
     Route: 065
     Dates: start: 20060101
  5. OXYGEN [Concomitant]
     Indication: DRUG USE FOR UNKNOWN INDICATION
     Route: 065
     Dates: start: 20080317, end: 20080320

REACTIONS (2)
  - RESPIRATORY FAILURE [None]
  - TESTICULAR DISORDER [None]
